FAERS Safety Report 25715137 (Version 1)
Quarter: 2025Q3

REPORT INFORMATION
  Report Type: Spontaneous
  Country: EU (occurrence: EU)
  Receive Date: 20250822
  Receipt Date: 20250822
  Transmission Date: 20251020
  Serious: Yes (Other)
  Sender: RANBAXY
  Company Number: EU-SUN PHARMACEUTICAL INDUSTRIES LTD-2025RR-523880

PATIENT
  Age: 62 Year
  Sex: Female
  Weight: 58 kg

DRUGS (10)
  1. TEMOZOLOMIDE [Suspect]
     Active Substance: TEMOZOLOMIDE
     Indication: Brain neoplasm malignant
     Route: 048
     Dates: start: 20250212, end: 20250216
  2. TEMOZOLOMIDE [Suspect]
     Active Substance: TEMOZOLOMIDE
     Route: 048
     Dates: start: 20250212, end: 20250216
  3. LEVETIRACETAM [Concomitant]
     Active Substance: LEVETIRACETAM
     Indication: Brain neoplasm malignant
     Route: 048
     Dates: start: 20241219
  4. METOCLOPRAMIDE [Concomitant]
     Active Substance: METOCLOPRAMIDE
     Indication: Brain neoplasm malignant
     Route: 048
     Dates: start: 20241106
  5. OMEPRAZOLE [Concomitant]
     Active Substance: OMEPRAZOLE
     Indication: Brain neoplasm malignant
     Route: 048
     Dates: start: 20241107
  6. FYCOMPA [Concomitant]
     Active Substance: PERAMPANEL
     Indication: Brain neoplasm malignant
     Route: 048
     Dates: start: 20241129
  7. ACETAMINOPHEN [Concomitant]
     Active Substance: ACETAMINOPHEN
     Indication: Brain neoplasm malignant
     Route: 048
     Dates: start: 20241106
  8. ABSTRAL [Concomitant]
     Active Substance: FENTANYL CITRATE
     Indication: Brain neoplasm malignant
     Route: 060
     Dates: start: 20250221
  9. LACOSAMIDE [Concomitant]
     Active Substance: LACOSAMIDE
     Indication: Brain neoplasm malignant
     Route: 048
     Dates: start: 20241129
  10. TEMOZOLOMIDE [Suspect]
     Active Substance: TEMOZOLOMIDE
     Indication: Brain neoplasm malignant
     Route: 048
     Dates: start: 20250212, end: 20250216

REACTIONS (2)
  - Neutropenia [Recovering/Resolving]
  - Thrombocytopenia [Recovering/Resolving]

NARRATIVE: CASE EVENT DATE: 20250312
